FAERS Safety Report 23345248 (Version 5)
Quarter: 2024Q1

REPORT INFORMATION
  Report Type: Spontaneous
  Country: US (occurrence: US)
  Receive Date: 20231228
  Receipt Date: 20240118
  Transmission Date: 20240410
  Serious: No
  Sender: FDA-Public Use
  Company Number: US-ABBVIE-5562492

PATIENT
  Sex: Female

DRUGS (5)
  1. VRAYLAR [Suspect]
     Active Substance: CARIPRAZINE
     Indication: Anxiety
     Dosage: FOR STRENGTH 1.5 MG
     Route: 065
     Dates: end: 20231125
  2. GABAPENTIN [Suspect]
     Active Substance: GABAPENTIN
     Indication: Product used for unknown indication
     Route: 065
  3. VALIUM [Suspect]
     Active Substance: DIAZEPAM
     Indication: Product used for unknown indication
  4. VALIUM [Suspect]
     Active Substance: DIAZEPAM
     Indication: Product used for unknown indication
     Route: 065
  5. TRAMADOL [Concomitant]
     Active Substance: TRAMADOL\TRAMADOL HYDROCHLORIDE
     Indication: Product used for unknown indication

REACTIONS (16)
  - Confusional state [Unknown]
  - Depression [Unknown]
  - Tremor [Unknown]
  - Dyskinesia [Unknown]
  - Mobility decreased [Unknown]
  - Restlessness [Unknown]
  - Drug interaction [Unknown]
  - Middle insomnia [Unknown]
  - Crying [Unknown]
  - Musculoskeletal stiffness [Unknown]
  - Disorientation [Unknown]
  - Anxiety [Unknown]
  - Dizziness [Unknown]
  - Loss of personal independence in daily activities [Unknown]
  - Initial insomnia [Unknown]
  - Parkinsonism [Unknown]
